FAERS Safety Report 13241492 (Version 1)
Quarter: 2017Q1

REPORT INFORMATION
  Report Type: Spontaneous
  Country: US (occurrence: US)
  Receive Date: 20170216
  Receipt Date: 20170216
  Transmission Date: 20170428
  Serious: Yes (Hospitalization)
  Sender: FDA-Public Use
  Company Number: None

PATIENT
  Age: 29 Year
  Sex: Male

DRUGS (9)
  1. TRETINOIN 10MG [Suspect]
     Active Substance: TRETINOIN
     Indication: RHEUMATOID ARTHRITIS
     Route: 048
     Dates: start: 20140911
  2. AXCODONE [Concomitant]
  3. VITAMIN B12 [Concomitant]
     Active Substance: CYANOCOBALAMIN
  4. NYSTOP [Concomitant]
     Active Substance: NYSTATIN
  5. GABAPENTIN. [Concomitant]
     Active Substance: GABAPENTIN
  6. ATROVASTATIN [Concomitant]
     Active Substance: ATORVASTATIN CALCIUM
  7. OXYCODONE [Concomitant]
     Active Substance: OXYCODONE
  8. ASPIRIN. [Concomitant]
     Active Substance: ASPIRIN
  9. VITAMIN D [Concomitant]
     Active Substance: CHOLECALCIFEROL

REACTIONS (1)
  - Chemotherapy [None]

NARRATIVE: CASE EVENT DATE: 20170208
